FAERS Safety Report 8936451 (Version 1)
Quarter: 2012Q4

REPORT INFORMATION
  Report Type: 
  Country: FR (occurrence: FR)
  Receive Date: 20121130
  Receipt Date: 20121130
  Transmission Date: 20130627
  Serious: Yes (Hospitalization)
  Sender: FDA-Public Use
  Company Number: FR-ROCHE-1161308

PATIENT
  Age: 44 Year
  Sex: Female

DRUGS (5)
  1. ROCEPHINE [Suspect]
     Indication: PRODUCT USED FOR UNKNOWN INDICATION
     Route: 058
     Dates: start: 20111209, end: 20111220
  2. TAVANIC [Suspect]
     Indication: PRODUCT USED FOR UNKNOWN INDICATION
     Route: 048
     Dates: start: 20111209, end: 20111220
  3. SKENAN [Suspect]
     Indication: PRODUCT USED FOR UNKNOWN INDICATION
     Route: 048
     Dates: start: 20111208, end: 20111220
  4. AUGMENTIN [Concomitant]
     Route: 042
     Dates: start: 20111207, end: 20111209
  5. PRIMPERAN (FRANCE) [Concomitant]
     Route: 048
     Dates: start: 20111207, end: 20111209

REACTIONS (5)
  - Rash morbilliform [Recovered/Resolved]
  - Pruritus [Recovered/Resolved]
  - Hypotension [Recovered/Resolved]
  - Suffocation feeling [Recovered/Resolved]
  - Throat tightness [None]
